FAERS Safety Report 7135945-5 (Version None)
Quarter: 2010Q4

REPORT INFORMATION
  Report Type: 
  Country: None (occurrence: None)
  Receive Date: 20101204
  Receipt Date: 20101109
  Transmission Date: 20110411
  Serious: Yes (Hospitalization)
  Sender: FDA-Public Use
  Company Number: US-BAYER-201028658NA

PATIENT

DRUGS (4)
  1. YAZ [Suspect]
     Indication: CONTRACEPTION
     Route: 048
     Dates: start: 20081002, end: 20091101
  2. YAZ [Suspect]
     Indication: ACNE
  3. AZITHROMYCIN [Concomitant]
     Dates: start: 20090601, end: 20090701
  4. NEXIUM [Concomitant]
     Dates: start: 20090630

REACTIONS (2)
  - CHOLECYSTITIS [None]
  - CHOLELITHIASIS [None]
